FAERS Safety Report 4799777-5 (Version None)
Quarter: 2005Q4

REPORT INFORMATION
  Report Type: 
  Country: None (occurrence: None)
  Receive Date: 20051012
  Receipt Date: 20051012
  Transmission Date: 20060501
  Serious: Yes (Hospitalization)
  Sender: FDA-Public Use
  Company Number: None

PATIENT
  Sex: Female
  Weight: 63.05 kg

DRUGS (1)
  1. FLUCONAZOLE [Suspect]
     Dosage: PO (THERAPY DATES: PRIOR TO ADMISSION)
     Route: 048

REACTIONS (4)
  - ANTICHOLINERGIC SYNDROME [None]
  - DRY MOUTH [None]
  - GLOSSODYNIA [None]
  - PHARYNGOLARYNGEAL PAIN [None]
